FAERS Safety Report 4939555-7 (Version None)
Quarter: 2006Q1

REPORT INFORMATION
  Report Type: 
  Country: None (occurrence: None)
  Receive Date: 20060306
  Receipt Date: 20060220
  Transmission Date: 20060701
  Serious: Yes (Hospitalization, Disabling, Other)
  Sender: FDA-Public Use
  Company Number: GBWYE416321FEB06

PATIENT
  Age: 59 Year
  Sex: Female

DRUGS (1)
  1. TRIHEXYPHENIDYL HCL [Suspect]
     Indication: DYSTONIA
     Dosage: 5 MG 3X PER 1 DAY ORAL
     Route: 048
     Dates: start: 20041001, end: 20050701

REACTIONS (2)
  - PULMONARY EOSINOPHILIA [None]
  - PULMONARY FIBROSIS [None]
